FAERS Safety Report 4855561-5 (Version None)
Quarter: 2005Q4

REPORT INFORMATION
  Report Type: 
  Country: None (occurrence: None)
  Receive Date: 20051216
  Receipt Date: 20051208
  Transmission Date: 20060501
  Serious: Yes (Other)
  Sender: FDA-Public Use
  Company Number: US-ABBOTT-05P-163-0319024-00

PATIENT
  Sex: Female
  Weight: 70.37 kg

DRUGS (5)
  1. OMNICEF [Suspect]
     Indication: SINUSITIS
     Route: 048
     Dates: start: 20051027, end: 20051110
  2. SINGULAIR [Concomitant]
     Indication: DRUG USE FOR UNKNOWN INDICATION
     Route: 048
  3. LORATADINE [Concomitant]
     Indication: DRUG USE FOR UNKNOWN INDICATION
     Route: 048
  4. SERETIDE MITE [Concomitant]
     Indication: ASTHMA
     Route: 055
  5. SALBUTAMOL [Concomitant]
     Indication: ASTHMA
     Route: 055

REACTIONS (6)
  - ARTHRALGIA [None]
  - ASTHMA [None]
  - DYSPHAGIA [None]
  - HYPERSENSITIVITY [None]
  - RED BLOOD CELL SEDIMENTATION RATE INCREASED [None]
  - URTICARIA [None]
